FAERS Safety Report 8139112-8 (Version None)
Quarter: 2012Q1

REPORT INFORMATION
  Report Type: 
  Country: None (occurrence: None)
  Receive Date: 20120215
  Receipt Date: 20120209
  Transmission Date: 20120608
  Serious: Yes (Hospitalization, Disabling, Other)
  Sender: FDA-Public Use
  Company Number: US-MERCK-1103USA00845

PATIENT
  Age: 63 Year
  Sex: Female
  Weight: 65 kg

DRUGS (7)
  1. FOSAMAX [Suspect]
     Route: 048
     Dates: start: 20080601, end: 20100401
  2. GLUCOSAMINE [Concomitant]
     Route: 065
     Dates: start: 19980101, end: 19990101
  3. FOSAMAX [Suspect]
     Indication: OSTEOPOROSIS
     Route: 048
     Dates: start: 19980501, end: 20001001
  4. ALENDRONATE SODIUM [Suspect]
     Route: 048
     Dates: start: 20080101
  5. FOSAMAX [Suspect]
     Route: 048
     Dates: start: 20001101, end: 20080501
  6. CALCIUM (UNSPECIFIED) AND VITAMIN D (UNSPECIFIED) [Concomitant]
     Route: 065
  7. HORMONES (UNSPECIFIED) [Concomitant]
     Route: 065
     Dates: start: 19921201, end: 20010101

REACTIONS (22)
  - FRACTURE [None]
  - MASTOID DISORDER [None]
  - RADIUS FRACTURE [None]
  - RECTAL POLYP [None]
  - DEVICE FAILURE [None]
  - ADVERSE EVENT [None]
  - CHRONIC OBSTRUCTIVE PULMONARY DISEASE [None]
  - DENTAL CARIES [None]
  - COLON ADENOMA [None]
  - BREAST CANCER [None]
  - GASTROOESOPHAGEAL REFLUX DISEASE [None]
  - SUPRAVENTRICULAR TACHYCARDIA [None]
  - COLONIC POLYP [None]
  - FEMUR FRACTURE [None]
  - LOW TURNOVER OSTEOPATHY [None]
  - ULNA FRACTURE [None]
  - BACK PAIN [None]
  - TOOTH DISORDER [None]
  - RHINORRHOEA [None]
  - OSTEOARTHRITIS [None]
  - HAEMORRHOIDS [None]
  - FIBROCYSTIC BREAST DISEASE [None]
